FAERS Safety Report 17554654 (Version 11)
Quarter: 2024Q3

REPORT INFORMATION
  Report Type: Report from Study
  Country: US (occurrence: US)
  Receive Date: 20200318
  Receipt Date: 20240830
  Transmission Date: 20241016
  Serious: Yes (Hospitalization, Other)
  Sender: NOVARTIS
  Company Number: NVSC2020US072932

PATIENT
  Sex: Female

DRUGS (3)
  1. COSENTYX [Suspect]
     Active Substance: SECUKINUMAB
     Indication: Product used for unknown indication
     Dosage: UNK
     Route: 065
  2. TEGRETOL [Suspect]
     Active Substance: CARBAMAZEPINE
     Indication: Product used for unknown indication
     Dosage: UNK
     Route: 065
  3. TEGRETOL XR [Suspect]
     Active Substance: CARBAMAZEPINE
     Indication: Product used for unknown indication
     Dosage: UNK
     Route: 065

REACTIONS (16)
  - Myocardial infarction [Unknown]
  - Thrombosis [Unknown]
  - Psoriatic arthropathy [Unknown]
  - Diabetes mellitus [Unknown]
  - Hepatic failure [Unknown]
  - Single functional kidney [Unknown]
  - Immune system disorder [Unknown]
  - Psoriasis [Unknown]
  - Condition aggravated [Unknown]
  - Gait inability [Unknown]
  - Arthritis [Unknown]
  - Illness [Unknown]
  - Headache [Unknown]
  - Nasopharyngitis [Unknown]
  - Influenza [Unknown]
  - Product dose omission issue [Unknown]
